FAERS Safety Report 4567986-6 (Version None)
Quarter: 2005Q1

REPORT INFORMATION
  Report Type: 
  Country: None (occurrence: None)
  Receive Date: 20050128
  Receipt Date: 20050112
  Transmission Date: 20050727
  Serious: Yes (Hospitalization)
  Sender: FDA-Public Use
  Company Number: DSA_25648_2005

PATIENT
  Age: 75 Year
  Sex: Female

DRUGS (12)
  1. DILTIAZEM [Suspect]
     Indication: VENTRICULAR DYSFUNCTION
     Dosage: 60 MG TID PO
     Route: 048
     Dates: end: 20041202
  2. ISOSORBIDE MONONITRATE [Suspect]
     Indication: MYOCARDIAL ISCHAEMIA
     Dosage: 60 MG Q DAY PO
     Route: 048
     Dates: end: 20041202
  3. LISINOPRIL [Suspect]
     Indication: VENTRICULAR DYSFUNCTION
     Dosage: 10 MG Q DAY PO
     Route: 048
     Dates: end: 20041202
  4. LACTULOSE [Concomitant]
  5. SIMVASTATIN [Concomitant]
  6. SERETIDE MITE [Concomitant]
  7. TIOTROPIUM BROMIDE [Concomitant]
  8. LANSOPRAZOLE [Concomitant]
  9. CALCIUM CARBONATE [Concomitant]
  10. AMITRIPTYLINE [Concomitant]
  11. ACETYLSALICYLIC ACID [Concomitant]
  12. CLOPIDOGREL [Concomitant]

REACTIONS (2)
  - BLOOD PRESSURE DECREASED [None]
  - CIRCULATORY COLLAPSE [None]
